FAERS Safety Report 4662627-1 (Version None)
Quarter: 2005Q2

REPORT INFORMATION
  Report Type: 
  Country: None (occurrence: None)
  Receive Date: 20050512
  Receipt Date: 20050422
  Transmission Date: 20051028
  Serious: Yes (Hospitalization)
  Sender: FDA-Public Use
  Company Number: JP_050406238

PATIENT
  Age: 4 Day
  Sex: Female
  Weight: 2 kg

DRUGS (2)
  1. ZYPREXA [Suspect]
     Dates: start: 20050224, end: 20050323
  2. TETRAMIDE (MIANSERIN HYDROCHLORIDE) [Concomitant]

REACTIONS (12)
  - CAESAREAN SECTION [None]
  - DRUG EXPOSURE DURING PREGNANCY [None]
  - DRUG EXPOSURE VIA BREAST MILK [None]
  - DRUG WITHDRAWAL SYNDROME NEONATAL [None]
  - GASTROINTESTINAL DISORDER [None]
  - HYPOCALCAEMIA [None]
  - IRRITABILITY [None]
  - NEONATAL DISORDER [None]
  - PREMATURE BABY [None]
  - RESPIRATORY DISORDER NEONATAL [None]
  - TRANSIENT TACHYPNOEA OF THE NEWBORN [None]
  - TREMOR NEONATAL [None]
